FAERS Safety Report 25204863 (Version 1)
Quarter: 2025Q2

REPORT INFORMATION
  Report Type: Spontaneous
  Country: GB (occurrence: GB)
  Receive Date: 20250416
  Receipt Date: 20250416
  Transmission Date: 20250716
  Serious: Yes (Death, Other)
  Sender: ROCHE
  Company Number: None

PATIENT
  Age: 57 Year
  Sex: Male
  Weight: 78 kg

DRUGS (1)
  1. TOCILIZUMAB [Suspect]
     Active Substance: TOCILIZUMAB
     Indication: Rheumatoid arthritis
     Route: 058
     Dates: start: 20140701

REACTIONS (3)
  - Haemarthrosis [Unknown]
  - Intra-abdominal haematoma [Fatal]
  - Arthritis bacterial [Unknown]

NARRATIVE: CASE EVENT DATE: 20230929
